FAERS Safety Report 5144465-9 (Version None)
Quarter: 2006Q4

REPORT INFORMATION
  Report Type: 
  Country: None (occurrence: None)
  Receive Date: 20061031
  Receipt Date: 20061027
  Transmission Date: 20070319
  Serious: Yes (Hospitalization)
  Sender: FDA-Public Use
  Company Number: TCI2006A00431

PATIENT
  Age: 35 Year
  Sex: Male

DRUGS (1)
  1. LANSAP 400 (LANSOPRAZOLE, CLARITHROMYCIN, AMOXICILLIN) [Suspect]
     Indication: GASTRITIS
     Dosage: 1 CARD (0.5 CARD, 2 IN 1 D) PER ORAL
     Route: 048
     Dates: start: 20060106, end: 20060113

REACTIONS (14)
  - CARDIAC FAILURE ACUTE [None]
  - CARDIOMEGALY [None]
  - FLUID OVERLOAD [None]
  - HEPATIC CONGESTION [None]
  - HEPATIC FUNCTION ABNORMAL [None]
  - HEPATOMEGALY [None]
  - LYMPHOCYTE STIMULATION TEST POSITIVE [None]
  - PULMONARY CONGESTION [None]
  - RASH [None]
  - RENAL FAILURE ACUTE [None]
  - SINUS TACHYCARDIA [None]
  - URINE OUTPUT INCREASED [None]
  - VASODILATATION [None]
  - VENTRICULAR HYPOKINESIA [None]
